FAERS Safety Report 7060080-4 (Version None)
Quarter: 2010Q4

REPORT INFORMATION
  Report Type: 
  Country: None (occurrence: None)
  Receive Date: 20101025
  Receipt Date: 20101019
  Transmission Date: 20110411
  Serious: Yes (Death, Hospitalization)
  Sender: FDA-Public Use
  Company Number: FR-ROCHE-682402

PATIENT
  Sex: Male
  Weight: 80 kg

DRUGS (5)
  1. BEVACIZUMAB [Suspect]
     Indication: GLIOBLASTOMA
     Dosage: CUMMULATIVE DOSE: 3300 MG. LAST RECEIVED DOSE OF 800 MG
     Route: 042
     Dates: start: 20090803, end: 20090914
  2. BEVACIZUMAB [Suspect]
     Dosage: CUMMULATIVE DOSE: 2280 MG. LAST RECEIVED DOSE OF 760MG.
     Route: 042
     Dates: start: 20091013, end: 20091109
  3. IRINOTECAN HCL [Suspect]
     Indication: GLIOBLASTOMA
     Dosage: CUMULATIVE DOSE 1000 MG. LAST RECEIVED DOSE OF 250MG.
     Route: 042
     Dates: start: 20090803, end: 20090914
  4. TEMOZOLOMIDE [Suspect]
     Indication: GLIOBLASTOMA
     Dosage: CUMULATIVE DOSE OF 3625 MG. LAST RECEIVED DOSE OF 145 MG
     Route: 048
     Dates: start: 20091013, end: 20091102
  5. PREDNISOLONE [Concomitant]
     Route: 048
     Dates: start: 20090601

REACTIONS (8)
  - COLONIC OBSTRUCTION [None]
  - DISEASE PROGRESSION [None]
  - GASTROINTESTINAL PERFORATION [None]
  - GLIOBLASTOMA [None]
  - HAEMORRHAGE [None]
  - LARGE INTESTINE PERFORATION [None]
  - SEPTIC SHOCK [None]
  - SIGMOIDITIS [None]
